FAERS Safety Report 5472348-3 (Version None)
Quarter: 2007Q3

REPORT INFORMATION
  Report Type: 
  Country: None (occurrence: None)
  Receive Date: 20070930
  Receipt Date: 20070920
  Transmission Date: 20080115
  Serious: Yes (Other)
  Sender: FDA-Public Use
  Company Number: GB-SHR-GB-2007-021427

PATIENT

DRUGS (1)
  1. FLUDARABINE PHOSPHATE [Suspect]
     Dates: start: 20070101

REACTIONS (1)
  - CARDIAC ARREST [None]
